FAERS Safety Report 6554797-5 (Version None)
Quarter: 2010Q1

REPORT INFORMATION
  Report Type: 
  Country: None (occurrence: None)
  Receive Date: 20100127
  Receipt Date: 20100120
  Transmission Date: 20100710
  Serious: Yes (Other)
  Sender: FDA-Public Use
  Company Number: NL-AMGEN-UK385465

PATIENT
  Sex: Female

DRUGS (1)
  1. NPLATE [Suspect]
     Indication: DRUG USE FOR UNKNOWN INDICATION
     Route: 042

REACTIONS (3)
  - DRUG ADMINISTRATION ERROR [None]
  - OVERDOSE [None]
  - PLATELET COUNT INCREASED [None]
